FAERS Safety Report 25358847 (Version 1)
Quarter: 2025Q2

REPORT INFORMATION
  Report Type: Spontaneous
  Country: GB (occurrence: GB)
  Receive Date: 20250526
  Receipt Date: 20250526
  Transmission Date: 20250716
  Serious: Yes (Other)
  Sender: TEVA
  Company Number: None

PATIENT

DRUGS (1)
  1. LEVOTHYROXINE [Suspect]
     Active Substance: LEVOTHYROXINE
     Indication: Hypothyroidism
     Route: 048

REACTIONS (7)
  - Memory impairment [Unknown]
  - Thyroid stimulating immunoglobulin increased [Unknown]
  - Irritability [Unknown]
  - Pruritus [Unknown]
  - Fatigue [Unknown]
  - Product substitution issue [Unknown]
  - Myalgia [Unknown]
